FAERS Safety Report 18207253 (Version 1)
Quarter: 2020Q3

REPORT INFORMATION
  Report Type: Spontaneous
  Country: US (occurrence: US)
  Receive Date: 20200827
  Receipt Date: 20200827
  Transmission Date: 20201103
  Serious: Yes (Hospitalization)
  Sender: FDA-Public Use
  Company Number: None

PATIENT
  Age: 59 Year
  Sex: Female

DRUGS (8)
  1. GABAPENTIN. [Concomitant]
     Active Substance: GABAPENTIN
  2. METHYLPRED [Concomitant]
     Active Substance: METHYLPREDNISOLONE
  3. FENTANYL. [Concomitant]
     Active Substance: FENTANYL
  4. HYDROCO/APAP [Concomitant]
     Active Substance: ACETAMINOPHEN\HYDROCODONE
  5. HYDROXYZ HCL [Concomitant]
     Active Substance: HYDROXYZINE HYDROCHLORIDE
  6. VENLAFAXINE [Concomitant]
     Active Substance: VENLAFAXINE HYDROCHLORIDE
  7. AVASTIN [Suspect]
     Active Substance: BEVACIZUMAB
     Indication: OVARIAN CANCER
     Dosage: ?          OTHER FREQUENCY:EVERY OTHER WEEK;?
     Route: 042
     Dates: start: 20181206
  8. AVASTIN [Suspect]
     Active Substance: BEVACIZUMAB
     Indication: OVARIAN CANCER
     Dosage: ?          OTHER FREQUENCY:EVERY OTHER WEEK;?
     Route: 042
     Dates: start: 20180830

REACTIONS (1)
  - Stent placement [None]

NARRATIVE: CASE EVENT DATE: 20200726
